FAERS Safety Report 7951344-8 (Version None)
Quarter: 2011Q4

REPORT INFORMATION
  Report Type: 
  Country: None (occurrence: None)
  Receive Date: 20111201
  Receipt Date: 20111125
  Transmission Date: 20120403
  Serious: Yes (Hospitalization)
  Sender: FDA-Public Use
  Company Number: NL-JNJFOC-20111109675

PATIENT
  Age: 54 Year
  Sex: Female

DRUGS (14)
  1. DOCETAXEL [Suspect]
     Indication: BREAST CANCER
     Route: 042
     Dates: start: 20110819
  2. DOXORUBICIN HCL [Suspect]
     Indication: BREAST CANCER
     Route: 042
     Dates: start: 20110819
  3. ANTAGEL [Concomitant]
     Route: 065
  4. ONDANSETRON [Concomitant]
     Route: 065
  5. GRANISTERON HYDROCHLORIDE [Concomitant]
     Route: 065
  6. ZOLEDRONIC ACID [Suspect]
     Indication: BREAST CANCER
     Route: 042
     Dates: start: 20110819
  7. ACETAMINOPHEN [Concomitant]
     Route: 065
  8. NYSTATINE [Concomitant]
     Route: 065
     Dates: start: 20110726
  9. NEXIUM [Concomitant]
     Route: 065
     Dates: start: 20110726
  10. NEULASTA [Suspect]
     Indication: PROPHYLAXIS
     Route: 065
  11. CYCLOPHOSPHAMIDE [Suspect]
     Indication: BREAST CANCER
     Route: 042
     Dates: start: 20110819
  12. CAD [Concomitant]
     Route: 065
  13. CIPROXIN NOS [Concomitant]
     Route: 065
     Dates: start: 20110823, end: 20110902
  14. DEXAMETHASONE [Concomitant]
     Route: 065

REACTIONS (2)
  - PROCTOCOLITIS [None]
  - HAEMORRHOIDS [None]
